FAERS Safety Report 8607418 (Version 2)
Quarter: 2013Q3

REPORT INFORMATION
  Report Type: Spontaneous
  Country: US (occurrence: US)
  Receive Date: 20120611
  Receipt Date: 20130813
  Transmission Date: 20140515
  Serious: No
  Sender: FDA-Public Use
  Company Number: US-ASTRAZENECA-2012SE34861

PATIENT
  Age: 62 Year
  Sex: Female

DRUGS (15)
  1. NEXIUM [Suspect]
     Route: 048
  2. NEXIUM [Suspect]
     Route: 048
     Dates: start: 20110907
  3. ZANTAC [Concomitant]
  4. MUCINEX SR [Concomitant]
     Indication: PULMONARY CONGESTION
     Route: 048
     Dates: start: 20101122
  5. HYDROCODON ACETAMINOPHEN [Concomitant]
     Indication: PAIN
     Dosage: 7.5-750 MG ONE TAB BY MOUTH EVERY 6T0 8 HOURS
     Route: 048
     Dates: start: 20101122
  6. ASPIRIN EC [Concomitant]
     Route: 048
     Dates: start: 20110125
  7. BENZONATATE [Concomitant]
     Route: 048
     Dates: start: 20110125
  8. LANSOPRAZOLE DR [Concomitant]
     Dates: start: 20110125
  9. METHYLPREDNISOLON [Concomitant]
     Dates: start: 20110315
  10. DIOVAN HCT [Concomitant]
     Dosage: 320-25 MG 1 TAB EVERY DAY
     Route: 048
     Dates: start: 20110326
  11. PROMETHAZINE [Concomitant]
     Indication: NAUSEA
     Route: 048
     Dates: start: 20110402
  12. BELLA PHENOBARB [Concomitant]
     Indication: ABDOMINAL PAIN UPPER
     Route: 048
     Dates: start: 20110402
  13. HYOSCYAMINE SULF [Concomitant]
     Route: 048
     Dates: start: 20110404
  14. FLUTICASONE [Concomitant]
     Dosage: 2 SPRAY EACH NOSTRIL EVERYDAY
     Route: 045
     Dates: start: 20110315
  15. SIMVASTATIN [Concomitant]
     Route: 048
     Dates: start: 20111011

REACTIONS (2)
  - Osteoporosis [Unknown]
  - Multiple fractures [Unknown]
